FAERS Safety Report 8346351-X (Version None)
Quarter: 2012Q2

REPORT INFORMATION
  Report Type: 
  Country: None (occurrence: None)
  Receive Date: 20120509
  Receipt Date: 20120507
  Transmission Date: 20120825
  Serious: Yes (Other)
  Sender: FDA-Public Use
  Company Number: US-PFIZER INC-2012017946

PATIENT
  Sex: Female
  Weight: 95.692 kg

DRUGS (3)
  1. ZOLOFT [Suspect]
     Indication: CONVULSION
     Dosage: 100 MG, 1X/DAY
     Route: 048
  2. CARBATROL [Concomitant]
     Indication: CONVULSION
     Dosage: UNK
  3. ZOLOFT [Suspect]
     Indication: DEPRESSION
     Dosage: 100 MG, 2X/DAY
     Route: 048

REACTIONS (4)
  - CONVULSION [None]
  - BRAIN OPERATION [None]
  - SPEECH DISORDER [None]
  - MEMORY IMPAIRMENT [None]
